FAERS Safety Report 20325104 (Version 7)
Quarter: 2022Q2

REPORT INFORMATION
  Report Type: Spontaneous
  Country: CA (occurrence: CA)
  Receive Date: 20220111
  Receipt Date: 20220528
  Transmission Date: 20220721
  Serious: Yes (Hospitalization, Other)
  Sender: FDA-Public Use
  Company Number: CA-CELLTRION INC.-2021CA018245

PATIENT

DRUGS (7)
  1. INFLECTRA [Suspect]
     Active Substance: INFLIXIMAB-DYYB
     Indication: Crohn^s disease
     Dosage: 5 MG/KG,  WEEKS 0,2,6 THEN EVERY 8 WEEKS
     Route: 042
     Dates: start: 20211231, end: 20211231
  2. ACETAMINOPHEN [Concomitant]
     Active Substance: ACETAMINOPHEN
     Dosage: 650 MG
     Route: 048
  3. BENADRYL [Concomitant]
     Active Substance: DIPHENHYDRAMINE HYDROCHLORIDE
     Dosage: 50 MG
     Route: 041
  4. FOLIC ACID [Concomitant]
     Active Substance: FOLIC ACID
     Dosage: UNK
  5. METHOTREXATE [Concomitant]
     Active Substance: METHOTREXATE
     Dosage: 1 DF, DOSAGE NOT AVAILABLE
     Route: 065
     Dates: start: 2019
  6. MORPHINE [Concomitant]
     Active Substance: MORPHINE
     Indication: Arthralgia
     Dosage: 1 DF
     Route: 065
  7. SOLU-CORTEF [Concomitant]
     Active Substance: HYDROCORTISONE SODIUM SUCCINATE
     Dosage: 100 MG
     Route: 041

REACTIONS (20)
  - Eye pain [Not Recovered/Not Resolved]
  - Pruritus [Not Recovered/Not Resolved]
  - Eye pruritus [Not Recovered/Not Resolved]
  - Ocular hypertension [Recovered/Resolved]
  - Arthralgia [Not Recovered/Not Resolved]
  - Off label use [Unknown]
  - Intentional product use issue [Unknown]
  - Oropharyngeal pain [Not Recovered/Not Resolved]
  - Headache [Unknown]
  - Nervousness [Unknown]
  - Eye pain [Recovered/Resolved]
  - Eye pain [Recovered/Resolved]
  - Ocular discomfort [Unknown]
  - Dry eye [Not Recovered/Not Resolved]
  - Neuralgia [Not Recovered/Not Resolved]
  - Constipation [Recovered/Resolved]
  - Weight increased [Unknown]
  - Urticaria [Not Recovered/Not Resolved]
  - Poor quality sleep [Not Recovered/Not Resolved]
  - Musculoskeletal discomfort [Not Recovered/Not Resolved]

NARRATIVE: CASE EVENT DATE: 20211201
